FAERS Safety Report 7202602-6 (Version None)
Quarter: 2010Q4

REPORT INFORMATION
  Report Type: 
  Country: None (occurrence: None)
  Receive Date: 20101126
  Receipt Date: 20101001
  Transmission Date: 20110411
  Serious: Yes (Hospitalization)
  Sender: FDA-Public Use
  Company Number: 315901

PATIENT
  Age: 51 Year
  Sex: Male
  Weight: 117.9 kg

DRUGS (7)
  1. VICTOZA [Suspect]
     Indication: TYPE 2 DIABETES MELLITUS
     Dosage: 5.4 MG, SINGLE ; 1.8 MG, QD, SUBCUTANEOUS
     Route: 058
     Dates: start: 20100901, end: 20100929
  2. VICTOZA [Suspect]
     Indication: TYPE 2 DIABETES MELLITUS
     Dosage: 5.4 MG, SINGLE ; 1.8 MG, QD, SUBCUTANEOUS
     Route: 058
     Dates: start: 20100929, end: 20100929
  3. LEVEMIR [Concomitant]
  4. HUMALOG /0030501/ (INSULIN) [Concomitant]
  5. FENOFIBRATE [Concomitant]
  6. TOPROL-XL [Concomitant]
  7. JANUVIA [Concomitant]

REACTIONS (2)
  - ACCIDENTAL OVERDOSE [None]
  - NAUSEA [None]
